FAERS Safety Report 6708234-8 (Version None)
Quarter: 2010Q2

REPORT INFORMATION
  Report Type: 
  Country: None (occurrence: None)
  Receive Date: 20100503
  Receipt Date: 20090312
  Transmission Date: 20101027
  Serious: No
  Sender: FDA-Public Use
  Company Number: US-ASTRAZENECA-2009UW06518

PATIENT
  Sex: Male

DRUGS (2)
  1. NEXIUM [Suspect]
     Route: 048
  2. TAGAMET [Concomitant]

REACTIONS (4)
  - ACCIDENTAL OVERDOSE [None]
  - DECREASED APPETITE [None]
  - MALAISE [None]
  - NAUSEA [None]
